FAERS Safety Report 21839838 (Version 1)
Quarter: 2023Q1

REPORT INFORMATION
  Report Type: Spontaneous
  Country: NL (occurrence: NL)
  Receive Date: 20230110
  Receipt Date: 20230110
  Transmission Date: 20230417
  Serious: Yes (Hospitalization, Other)
  Sender: FDA-Public Use
  Company Number: NL-NOVEN PHARMACEUTICALS, INC.-2023-NOV-NL000003

PATIENT
  Age: 39 Year
  Sex: Female

DRUGS (8)
  1. DEXTROAMPHETAMINE [Suspect]
     Active Substance: DEXTROAMPHETAMINE
     Indication: Major depression
     Dosage: UNKNOWN,UNKNOWN
     Route: 065
  2. DEXTROAMPHETAMINE [Suspect]
     Active Substance: DEXTROAMPHETAMINE
     Indication: Generalised anxiety disorder
  3. DEXTROAMPHETAMINE [Suspect]
     Active Substance: DEXTROAMPHETAMINE
     Indication: Attention deficit hyperactivity disorder
  4. DEXTROAMPHETAMINE [Suspect]
     Active Substance: DEXTROAMPHETAMINE
     Indication: Obsessive-compulsive disorder
  5. AMPHETAMINE [Suspect]
     Active Substance: AMPHETAMINE
     Indication: Major depression
     Dosage: UNK, UNK
     Route: 065
  6. AMPHETAMINE [Suspect]
     Active Substance: AMPHETAMINE
     Indication: Generalised anxiety disorder
  7. AMPHETAMINE [Suspect]
     Active Substance: AMPHETAMINE
     Indication: Attention deficit hyperactivity disorder
  8. AMPHETAMINE [Suspect]
     Active Substance: AMPHETAMINE
     Indication: Obsessive-compulsive disorder

REACTIONS (1)
  - Intentional self-injury [Unknown]
